FAERS Safety Report 4611504-0 (Version None)
Quarter: 2005Q1

REPORT INFORMATION
  Report Type: 
  Country: None (occurrence: None)
  Receive Date: 20050317
  Receipt Date: 20050204
  Transmission Date: 20050727
  Serious: Yes (Other)
  Sender: FDA-Public Use
  Company Number: JP-ROCHE-394720

PATIENT
  Age: 43 Year
  Sex: Male

DRUGS (12)
  1. VESANOID [Suspect]
     Indication: ACUTE PROMYELOCYTIC LEUKAEMIA
     Dosage: 30-20-30
     Route: 048
     Dates: start: 20050108, end: 20050127
  2. OZEX [Concomitant]
     Dosage: DRUG WAS ALSO STOPPED ON 8 JANUUARY AND RESTARTED ON 12 JANUARY.
     Route: 048
     Dates: start: 20050105, end: 20050118
  3. DIFLUCAN [Concomitant]
     Route: 048
     Dates: start: 20050105, end: 20050206
  4. ADONA [Concomitant]
     Dosage: DOSE FORM REPORTED AS ORAL FORMULATION (NOT OTHERWISE SPECIFIED)
     Route: 048
     Dates: start: 20050105
  5. TRANSAMIN [Concomitant]
     Dosage: DOSE FORM REPORTED AS ORAL FORMULATION (NOT OTHERWISE SPECIFIED)
     Route: 048
     Dates: start: 20050105
  6. ZYLORIC [Concomitant]
     Route: 048
     Dates: start: 20050105
  7. FOY [Concomitant]
     Route: 042
     Dates: start: 20050105, end: 20050112
  8. INOVAN [Concomitant]
     Route: 042
     Dates: start: 20050105, end: 20050111
  9. MODACIN [Concomitant]
     Dosage: DRUG STOPPED ON 12 JANUARY AND RESTARTED ON 18 JANUARY.
     Route: 042
     Dates: start: 20050108, end: 20050120
  10. CARBENIN [Concomitant]
     Route: 042
     Dates: start: 20050121, end: 20050127
  11. VANCOMYCIN [Concomitant]
     Dosage: DRUG STOPPED  ON 22 JANUARY AND RESARTED THE FOLLOWING DAY AT A REDUCED DOSE OF 500 MG AND STOPPED +
     Route: 042
     Dates: start: 20050122, end: 20050202
  12. FIRSTCIN [Concomitant]
     Route: 042
     Dates: start: 20050127, end: 20050202

REACTIONS (5)
  - AURICULAR SWELLING [None]
  - OEDEMA PERIPHERAL [None]
  - PYREXIA [None]
  - RASH [None]
  - SCROTAL ULCER [None]
